FAERS Safety Report 18810819 (Version 1)
Quarter: 2021Q1

REPORT INFORMATION
  Report Type: Spontaneous
  Country: FR (occurrence: FR)
  Receive Date: 20210129
  Receipt Date: 20210129
  Transmission Date: 20210419
  Serious: Yes (Life-Threatening)
  Sender: FDA-Public Use
  Company Number: NVSC2021FR020676

PATIENT
  Age: 61 Year
  Sex: Male
  Weight: 75 kg

DRUGS (5)
  1. TERCIAN [Suspect]
     Active Substance: CYAMEMAZINE
     Indication: POISONING DELIBERATE
     Dosage: 25 DF, 1 TOTAL
     Route: 048
     Dates: start: 20210113
  2. QUETIAPINE. [Suspect]
     Active Substance: QUETIAPINE
     Indication: POISONING DELIBERATE
     Dosage: 50 DF, ONCE/SINGLE
     Route: 048
     Dates: start: 20210113
  3. CARBAMAZEPINE. [Suspect]
     Active Substance: CARBAMAZEPINE
     Indication: POISONING DELIBERATE
     Dosage: 30 DF, 1 TOTAL
     Route: 048
     Dates: start: 20210113
  4. PARKINANE LP [Suspect]
     Active Substance: TRIHEXYPHENIDYL HYDROCHLORIDE
     Indication: POISONING DELIBERATE
     Dosage: 20 DF, 1 TOTAL
     Route: 048
     Dates: start: 20210113
  5. LORMETAZEPAM [Suspect]
     Active Substance: LORMETAZEPAM
     Indication: POISONING DELIBERATE
     Dosage: 28 DF, ONCE/SINGLE
     Route: 048
     Dates: start: 20210113

REACTIONS (2)
  - Coma [Recovered/Resolved]
  - Suicide attempt [Recovered/Resolved]

NARRATIVE: CASE EVENT DATE: 20210113
